FAERS Safety Report 4808916-9 (Version None)
Quarter: 2005Q4

REPORT INFORMATION
  Report Type: 
  Country: None (occurrence: None)
  Receive Date: 20051024
  Receipt Date: 20051012
  Transmission Date: 20060501
  Serious: Yes (Hospitalization)
  Sender: FDA-Public Use
  Company Number: 2005-133577-NL

PATIENT
  Age: 57 Year
  Sex: Male

DRUGS (3)
  1. MIRTAZAPINE [Suspect]
     Dosage: 15 MG, ORAL
     Route: 048
     Dates: start: 20050216, end: 20050316
  2. OLANZAPINE [Suspect]
     Dosage: 10 MG, ORAL
     Route: 048
     Dates: start: 20050224, end: 20050316
  3. CITALOPRAM [Concomitant]

REACTIONS (3)
  - ABDOMINAL ADHESIONS [None]
  - ILEUS [None]
  - INTESTINAL STRANGULATION [None]
